FAERS Safety Report 10208865 (Version 2)
Quarter: 2014Q2

REPORT INFORMATION
  Report Type: Spontaneous
  Country: CA (occurrence: CA)
  Receive Date: 20140530
  Receipt Date: 20140530
  Transmission Date: 20141212
  Serious: Yes (Hospitalization, Other)
  Sender: FDA-Public Use
  Company Number: CA-ASTELLAS-2014US005449

PATIENT
  Age: 42 Year
  Sex: Male

DRUGS (4)
  1. ADVAGRAF [Suspect]
     Indication: RENAL TRANSPLANT
     Route: 048
     Dates: start: 201104
  2. ADVAGRAF [Suspect]
     Route: 048
     Dates: start: 201104
  3. WARFARIN [Suspect]
     Indication: ANTICOAGULANT THERAPY
     Route: 065
  4. FORTAMET [Concomitant]
     Indication: PRODUCT USED FOR UNKNOWN INDICATION
     Route: 065

REACTIONS (2)
  - Renal transplant [Unknown]
  - Blood urine present [Recovering/Resolving]
